FAERS Safety Report 9142218 (Version 2)
Quarter: 2013Q2

REPORT INFORMATION
  Report Type: Spontaneous
  Country: US (occurrence: US)
  Receive Date: 20130305
  Receipt Date: 20130404
  Transmission Date: 20140414
  Serious: Yes (Hospitalization, Other)
  Sender: FDA-Public Use
  Company Number: US-AMGEN-USASP2013012375

PATIENT
  Age: 54 Year
  Sex: Female

DRUGS (5)
  1. ENBREL [Suspect]
     Indication: RHEUMATOID ARTHRITIS
     Dosage: 50 MG, QWK
     Dates: start: 20120829, end: 201212
  2. ENBREL [Suspect]
  3. MELOXICAM [Suspect]
     Dosage: UNK
  4. AZATHIOPRINE [Suspect]
     Dosage: UNK
  5. METHOTREXATE [Concomitant]
     Dosage: UNK

REACTIONS (10)
  - Urinary tract infection [Recovered/Resolved]
  - Staphylococcal infection [Recovered/Resolved]
  - Cellulitis [Recovered/Resolved]
  - Staphylococcal sepsis [Unknown]
  - Hepatic enzyme increased [Not Recovered/Not Resolved]
  - Thermal burn [Unknown]
  - Local swelling [Unknown]
  - Pain [Not Recovered/Not Resolved]
  - Therapeutic product ineffective [Not Recovered/Not Resolved]
  - Abdominal pain upper [Not Recovered/Not Resolved]
